FAERS Safety Report 10267464 (Version 3)
Quarter: 2014Q3

REPORT INFORMATION
  Report Type: Report from Study
  Country: US (occurrence: US)
  Receive Date: 20140630
  Receipt Date: 20140716
  Transmission Date: 20150326
  Serious: Yes (Hospitalization)
  Sender: FDA-Public Use
  Company Number: US-SA-2014SA082622

PATIENT
  Age: 63 Year
  Sex: Female
  Weight: 94 kg

DRUGS (32)
  1. LEVOTHYROXINE [Concomitant]
     Active Substance: LEVOTHYROXINE
     Dosage: IN THE MORNING
     Route: 048
  2. WELLBUTRIN [Concomitant]
     Active Substance: BUPROPION HYDROCHLORIDE
     Route: 048
  3. KLONOPIN [Concomitant]
     Active Substance: CLONAZEPAM
     Route: 048
  4. SIROLIMUS. [Concomitant]
     Active Substance: SIROLIMUS
  5. CLONIDINE. [Concomitant]
     Active Substance: CLONIDINE
  6. NADOLOL. [Concomitant]
     Active Substance: NADOLOL
     Route: 048
  7. TACROLIMUS. [Concomitant]
     Active Substance: TACROLIMUS
     Route: 042
  8. OXYCODONE [Concomitant]
     Active Substance: OXYCODONE
  9. VENLAFAXINE [Concomitant]
     Active Substance: VENLAFAXINE HYDROCHLORIDE
  10. CLOFARABINE [Suspect]
     Active Substance: CLOFARABINE
     Indication: BONE MARROW CONDITIONING REGIMEN
     Route: 042
     Dates: start: 20140519, end: 20140523
  11. DILTIAZEM [Concomitant]
     Active Substance: DILTIAZEM
     Route: 048
  12. GABAPENTIN. [Concomitant]
     Active Substance: GABAPENTIN
     Route: 048
  13. CELLCEPT [Concomitant]
     Active Substance: MYCOPHENOLATE MOFETIL\MYCOPHENOLATE MOFETIL HYDROCHLORIDE
     Route: 042
  14. LOMOTIL [Concomitant]
     Active Substance: ATROPINE SULFATE\DIPHENOXYLATE HYDROCHLORIDE
     Indication: DIARRHOEA
  15. MICAFUNGIN [Concomitant]
     Active Substance: MICAFUNGIN
     Route: 042
  16. MIRTAZAPINE. [Concomitant]
     Active Substance: MIRTAZAPINE
     Route: 048
  17. CARAFATE [Concomitant]
     Active Substance: SUCRALFATE
     Route: 048
  18. BIOTENE [Concomitant]
     Active Substance: SODIUM MONOFLUOROPHOSPHATE
  19. ACYCLOVIR. [Concomitant]
     Active Substance: ACYCLOVIR
     Route: 048
  20. PROVERA [Concomitant]
     Active Substance: MEDROXYPROGESTERONE ACETATE
     Route: 048
  21. PROTONIX [Concomitant]
     Active Substance: PANTOPRAZOLE SODIUM
     Route: 042
  22. PRISTIQ EXTENDED RELEASE [Concomitant]
     Active Substance: DESVENLAFAXINE SUCCINATE
     Route: 048
  23. FOLIC ACID. [Concomitant]
     Active Substance: FOLIC ACID
  24. MEPRON [Concomitant]
     Active Substance: ATOVAQUONE
     Route: 048
  25. REMERON [Concomitant]
     Active Substance: MIRTAZAPINE
  26. ESTRADIOL. [Concomitant]
     Active Substance: ESTRADIOL
     Route: 048
  27. MULTIVITAMINS [Concomitant]
     Active Substance: VITAMINS
     Route: 048
  28. PREDNISONE. [Concomitant]
     Active Substance: PREDNISONE
  29. MELPHALAN [Suspect]
     Active Substance: MELPHALAN
     Indication: BONE MARROW CONDITIONING REGIMEN
     Route: 042
     Dates: start: 20140524
  30. SOLU-MEDROL [Concomitant]
     Active Substance: METHYLPREDNISOLONE SODIUM SUCCINATE
     Route: 042
  31. QUETIAPINE [Concomitant]
     Active Substance: QUETIAPINE
  32. URSODIOL. [Concomitant]
     Active Substance: URSODIOL
     Route: 048

REACTIONS (3)
  - Human herpesvirus 6 infection [Not Recovered/Not Resolved]
  - Pneumonia fungal [Not Recovered/Not Resolved]
  - Lung infiltration [Not Recovered/Not Resolved]

NARRATIVE: CASE EVENT DATE: 20140617
